FAERS Safety Report 26154068 (Version 1)
Quarter: 2025Q4

REPORT INFORMATION
  Report Type: Spontaneous
  Country: JP (occurrence: JP)
  Receive Date: 20251215
  Receipt Date: 20251215
  Transmission Date: 20260118
  Serious: Yes (Other)
  Sender: JOHNSON AND JOHNSON
  Company Number: JP-JNJFOC-20251215914

PATIENT
  Age: 6 Decade
  Sex: Female

DRUGS (4)
  1. EDURANT [Suspect]
     Active Substance: RILPIVIRINE HYDROCHLORIDE
     Indication: HIV infection
     Dosage: DOSE UNKNOWN
     Route: 048
  2. RILPIVIRINE [Suspect]
     Active Substance: RILPIVIRINE
     Indication: HIV infection
     Dosage: DOSE UNKNOWN
     Route: 030
  3. CABOTEGRAVIR [Suspect]
     Active Substance: CABOTEGRAVIR
     Indication: HIV infection
     Dosage: DOSE UNKNOWN
     Route: 030
  4. CABOTEGRAVIR SODIUM [Concomitant]
     Indication: HIV infection
     Dosage: DOSE UNKNOWN
     Route: 048

REACTIONS (2)
  - Blood glucose increased [Recovered/Resolved]
  - Off label use [Unknown]
